FAERS Safety Report 8418693-0 (Version None)
Quarter: 2012Q2

REPORT INFORMATION
  Report Type: 
  Country: None (occurrence: None)
  Receive Date: 20120607
  Receipt Date: 20120525
  Transmission Date: 20120825
  Serious: No
  Sender: FDA-Public Use
  Company Number: US-ASTRAZENECA-2012SE26465

PATIENT
  Age: 74 Year
  Sex: Female

DRUGS (11)
  1. METOPROLOL TARTRATE [Concomitant]
  2. CLARINEX [Concomitant]
  3. PREVACID 24 HR [Concomitant]
  4. CAPRELSA [Suspect]
     Indication: THYROID CANCER
     Route: 048
  5. SYNTHROID [Concomitant]
  6. VITAMIN B-12 [Concomitant]
  7. CLONAZEPAM [Concomitant]
  8. CALCIUM 1000+D [Concomitant]
  9. LORTAB [Concomitant]
  10. ASPIRIN [Concomitant]
  11. PAPAYA ENZYMES [Concomitant]

REACTIONS (5)
  - MUSCULOSKELETAL PAIN [None]
  - FATIGUE [None]
  - JOINT SWELLING [None]
  - DIARRHOEA [None]
  - PALPITATIONS [None]
